FAERS Safety Report 23795664 (Version 1)
Quarter: 2024Q2

REPORT INFORMATION
  Report Type: Spontaneous
  Country: US (occurrence: None)
  Receive Date: 20240426
  Receipt Date: 20240426
  Transmission Date: 20240716
  Serious: Yes (Other)
  Sender: FDA-Public Use
  Company Number: None

PATIENT
  Age: 33 Year
  Sex: Female
  Weight: 56.25 kg

DRUGS (1)
  1. NEXTSTELLIS [Suspect]
     Active Substance: DROSPIRENONE\ESTETROL MONOHYDRATE
     Indication: Polycystic ovaries
     Dosage: OTHER QUANTITY : 30 TABLET(S);?FREQUENCY : DAILY;?
     Route: 048
     Dates: start: 20231001, end: 20240425

REACTIONS (7)
  - Hypersensitivity [None]
  - Rash [None]
  - Rash [None]
  - Rash [None]
  - Rash [None]
  - Skin swelling [None]
  - Swelling of eyelid [None]

NARRATIVE: CASE EVENT DATE: 20231015
